FAERS Safety Report 4356034-9 (Version None)
Quarter: 2004Q2

REPORT INFORMATION
  Report Type: 
  Country: None (occurrence: None)
  Receive Date: 20040505
  Receipt Date: 20040428
  Transmission Date: 20050107
  Serious: Yes (Other)
  Sender: FDA-Public Use
  Company Number: 2004209703US

PATIENT
  Sex: 0

DRUGS (2)
  1. BEXTRA [Suspect]
  2. METHOTREXATE [Suspect]

REACTIONS (2)
  - DRUG INTERACTION [None]
  - STEVENS-JOHNSON SYNDROME [None]
